FAERS Safety Report 21308584 (Version 2)
Quarter: 2022Q4

REPORT INFORMATION
  Report Type: Spontaneous
  Country: US (occurrence: None)
  Receive Date: 20220908
  Receipt Date: 20221021
  Transmission Date: 20230112
  Serious: Yes (Other)
  Sender: FDA-Public Use
  Company Number: 2022A308312

PATIENT
  Age: 58 Year
  Sex: Female
  Weight: 52.6 kg

DRUGS (1)
  1. TEZSPIRE [Suspect]
     Active Substance: TEZEPELUMAB-EKKO
     Indication: Asthma
     Route: 065
     Dates: start: 20220720, end: 20220817

REACTIONS (1)
  - Angioedema [Recovered/Resolved]
